FAERS Safety Report 5680838-3 (Version None)
Quarter: 2008Q1

REPORT INFORMATION
  Report Type: 
  Country: None (occurrence: None)
  Receive Date: 20080326
  Receipt Date: 20080312
  Transmission Date: 20080703
  Serious: Yes (Other)
  Sender: FDA-Public Use
  Company Number: DK-PFIZER INC-2008025968

PATIENT
  Sex: Female

DRUGS (1)
  1. NICOTINE NASAL SPRAY [Suspect]
     Indication: SMOKING CESSATION THERAPY
     Route: 045

REACTIONS (1)
  - NERVE COMPRESSION [None]
